FAERS Safety Report 6969377-7 (Version None)
Quarter: 2010Q3

REPORT INFORMATION
  Report Type: 
  Country: None (occurrence: None)
  Receive Date: 20100902
  Receipt Date: 20100818
  Transmission Date: 20110219
  Serious: Yes (Other)
  Sender: FDA-Public Use
  Company Number: 1000015950

PATIENT
  Age: 90 Year
  Sex: Female
  Weight: 44 kg

DRUGS (16)
  1. MEMANTINE HCL [Suspect]
     Dosage: 10 MG (5 MG, 2 IN 1 D), ORAL
     Route: 048
  2. ACETAMINOPHEN [Concomitant]
  3. ACETYLSALICYLIC ACID [Concomitant]
  4. BISOPROLOL [Concomitant]
  5. CALCIUM + VITAMIN D [Concomitant]
  6. CITALOPRAM HYDROBROMIDE [Concomitant]
  7. CLONIDINE [Concomitant]
  8. DOCUSATE SODIUM [Concomitant]
  9. ERYTHROMYCIN [Concomitant]
  10. FORZA-10 [Concomitant]
  11. HYDROCORTISONE ACETATE [Concomitant]
  12. LANSOPRAZOLE [Concomitant]
  13. NYSTATIN [Concomitant]
  14. RAMIPRIL [Concomitant]
  15. RISPERIDONE [Concomitant]
  16. WARFARIN SODIUM [Concomitant]

REACTIONS (1)
  - HYPERTENSION [None]
